FAERS Safety Report 10759865 (Version 1)
Quarter: 2015Q1

REPORT INFORMATION
  Report Type: Spontaneous
  Country: CN (occurrence: CN)
  Receive Date: 20150203
  Receipt Date: 20150203
  Transmission Date: 20150721
  Serious: Yes (Other)
  Sender: FDA-Public Use
  Company Number: CN-MYLANLABS-2015M1002864

PATIENT

DRUGS (3)
  1. ERLOTINIB [Suspect]
     Active Substance: ERLOTINIB
     Indication: LUNG ADENOCARCINOMA STAGE IV
     Dosage: DISCONTINUED DURING CHEST RADIOTHERAPY, THEN CONTINUED
     Route: 065
  2. GEMCITABINE [Suspect]
     Active Substance: GEMCITABINE\GEMCITABINE HYDROCHLORIDE
     Indication: LUNG ADENOCARCINOMA STAGE IV
     Dosage: 1250MG/M2; D1, 8
     Route: 065
     Dates: start: 200907
  3. CISPLATIN. [Suspect]
     Active Substance: CISPLATIN
     Indication: LUNG ADENOCARCINOMA STAGE IV
     Dosage: 75MG/M2 DIVIDED INTO D1-3
     Route: 065
     Dates: start: 200907

REACTIONS (3)
  - Gene mutation [Unknown]
  - Thrombocytopenia [Recovered/Resolved]
  - Rash [Unknown]
